FAERS Safety Report 8809963 (Version 5)
Quarter: 2013Q3

REPORT INFORMATION
  Report Type: Spontaneous
  Country: US (occurrence: US)
  Receive Date: 20120926
  Receipt Date: 20130919
  Transmission Date: 20140515
  Serious: Yes (Hospitalization, Disabling, Other)
  Sender: FDA-Public Use
  Company Number: US-009507513-1209USA007825

PATIENT
  Sex: Female
  Weight: 72.56 kg

DRUGS (9)
  1. FOSAMAX [Suspect]
     Indication: OSTEOPENIA
     Dosage: 70 MG, QW
     Route: 048
     Dates: start: 20011023, end: 200802
  2. ALENDRONATE SODIUM [Suspect]
     Indication: OSTEOPENIA
     Dosage: 70 MG, QW
     Route: 048
     Dates: start: 20080110, end: 20101102
  3. VITAMINS (UNSPECIFIED) [Concomitant]
     Dosage: UNK
     Dates: start: 1997
  4. MAGNESIUM (UNSPECIFIED) [Concomitant]
     Dosage: UNK
     Dates: start: 1997
  5. SELENIUM (UNSPECIFIED) [Concomitant]
     Dosage: UNK
     Dates: start: 1997
  6. CALCIUM (UNSPECIFIED) [Concomitant]
     Dosage: UNK
     Dates: start: 1997
  7. VITAMIN D (UNSPECIFIED) [Concomitant]
     Dosage: UNK
     Dates: start: 1997
  8. ALENDRONATE SODIUM [Suspect]
     Dosage: 70 MG, QW
  9. ALENDRONATE SODIUM [Suspect]
     Dosage: 70 MG, QW

REACTIONS (24)
  - Femur fracture [Not Recovered/Not Resolved]
  - Internal fixation of fracture [Unknown]
  - Intramedullary rod insertion [Unknown]
  - Cholecystectomy [Unknown]
  - Mammoplasty [Unknown]
  - Anaemia [Unknown]
  - Transfusion [Unknown]
  - Myocardial infarction [Recovering/Resolving]
  - Knee arthroplasty [Unknown]
  - Osteoarthritis [Not Recovered/Not Resolved]
  - Knee arthroplasty [Recovered/Resolved]
  - Femur fracture [Recovered/Resolved]
  - Low turnover osteopathy [Unknown]
  - Anxiety [Not Recovered/Not Resolved]
  - Depression [Not Recovered/Not Resolved]
  - Foot fracture [Not Recovered/Not Resolved]
  - Foot fracture [Not Recovered/Not Resolved]
  - Hormone therapy [Not Recovered/Not Resolved]
  - Anaesthetic complication [Unknown]
  - Fall [Unknown]
  - Coronary artery disease [Unknown]
  - Osteoporosis [Not Recovered/Not Resolved]
  - Fracture delayed union [Unknown]
  - Dysphagia [Unknown]
